FAERS Safety Report 21135659 (Version 1)
Quarter: 2022Q3

REPORT INFORMATION
  Report Type: Report from Study
  Country: US (occurrence: US)
  Receive Date: 20220727
  Receipt Date: 20220727
  Transmission Date: 20221027
  Serious: Yes (Other)
  Sender: FDA-Public Use
  Company Number: US-BTGSP-US-BTGSP-22-0094

PATIENT
  Age: 37 Year
  Sex: Male

DRUGS (5)
  1. CROFAB [Suspect]
     Active Substance: CROTALIDAE POLYVALENT IMMUNE FAB (OVINE)
     Indication: Snake bite
     Dosage: 6 VIALS, 2.5 HOURS AFTER THE SNAKE BITE
     Route: 065
     Dates: start: 202204
  2. ANAVIP [Suspect]
     Active Substance: PIT VIPER (CROTALINAE) IMMUNE GLOBULIN ANTIVENIN (EQUINE)
     Indication: Snake bite
     Dosage: 10 VIALS, 7 HOURS AFTER THE SNAKE BITE
     Route: 065
     Dates: start: 202204
  3. ANAVIP [Suspect]
     Active Substance: PIT VIPER (CROTALINAE) IMMUNE GLOBULIN ANTIVENIN (EQUINE)
     Dosage: 6 VIALS, 13.5 HOURS AFTER THE SNAKE BITE
     Route: 065
     Dates: start: 202204
  4. TENOFOVIR [Concomitant]
     Active Substance: TENOFOVIR
     Indication: Product used for unknown indication
     Dosage: UNK
     Route: 065
  5. SERTRALINE [Concomitant]
     Active Substance: SERTRALINE HYDROCHLORIDE
     Indication: Product used for unknown indication
     Dosage: UNK
     Route: 065

REACTIONS (4)
  - Mobility decreased [Unknown]
  - Off label use [Unknown]
  - Underdose [Unknown]
  - Therapy change [Unknown]

NARRATIVE: CASE EVENT DATE: 20220401
